FAERS Safety Report 14910442 (Version 1)
Quarter: 2018Q2

REPORT INFORMATION
  Report Type: Spontaneous
  Country: FR (occurrence: FR)
  Receive Date: 20180517
  Receipt Date: 20180517
  Transmission Date: 20180711
  Serious: Yes (Other)
  Sender: FDA-Public Use
  Company Number: FR-PFIZER INC-2018199493

PATIENT
  Age: 79 Year
  Sex: Male
  Weight: 68 kg

DRUGS (2)
  1. CARBOPLATINE HOSPIRA [Suspect]
     Active Substance: CARBOPLATIN
     Indication: PLEURAL MESOTHELIOMA
     Dosage: UNK
     Dates: start: 201411
  2. ALIMTA [Suspect]
     Active Substance: PEMETREXED DISODIUM
     Indication: PLEURAL MESOTHELIOMA
     Dosage: UNK
     Dates: start: 201411

REACTIONS (1)
  - Cognitive disorder [Not Recovered/Not Resolved]

NARRATIVE: CASE EVENT DATE: 201411
